FAERS Safety Report 17201644 (Version 2)
Quarter: 2019Q4

REPORT INFORMATION
  Report Type: Spontaneous
  Country: US (occurrence: US)
  Receive Date: 20191226
  Receipt Date: 20191227
  Transmission Date: 20200122
  Serious: Yes (Other)
  Sender: FDA-Public Use
  Company Number: US-PFIZER INC-2019548748

PATIENT
  Age: 26 Year
  Sex: Male
  Weight: 128 kg

DRUGS (2)
  1. DEPO-TESTOSTERONE [Suspect]
     Active Substance: TESTOSTERONE CYPIONATE
     Indication: SECONDARY HYPOGONADISM
     Dosage: 400 MG, UNK (TOTAL OF 400 MG)
  2. DEPO-TESTOSTERONE [Suspect]
     Active Substance: TESTOSTERONE CYPIONATE
     Dosage: UNK (REINSTITUTION DEPO-TESTOSTERONE THERAPY FOR 4 MONTHS)

REACTIONS (4)
  - Hypoventilation [Recovering/Resolving]
  - Pickwickian syndrome [Recovering/Resolving]
  - Hypersomnia [Recovering/Resolving]
  - Right ventricular failure [Recovering/Resolving]
